FAERS Safety Report 5316960-0 (Version None)
Quarter: 2007Q2

REPORT INFORMATION
  Report Type: 
  Country: None (occurrence: None)
  Receive Date: 20070504
  Receipt Date: 20070423
  Transmission Date: 20071010
  Serious: Yes (Other)
  Sender: FDA-Public Use
  Company Number: JP-PFIZER INC-2007032710

PATIENT
  Age: 41 Year
  Sex: Male

DRUGS (2)
  1. NORVASC [Suspect]
     Indication: HYPERTENSION
     Dosage: DAILY DOSE:20MG
     Route: 048
  2. CARDENALIN [Suspect]
     Indication: HYPERTENSION
     Dosage: DAILY DOSE:24MG
     Route: 048

REACTIONS (2)
  - HYPERTENSION [None]
  - INTENTIONAL OVERDOSE [None]
